FAERS Safety Report 17125206 (Version 1)
Quarter: 2019Q4

REPORT INFORMATION
  Report Type: Spontaneous
  Country: CN (occurrence: CN)
  Receive Date: 20191206
  Receipt Date: 20191206
  Transmission Date: 20200122
  Serious: Yes (Hospitalization, Other)
  Sender: FDA-Public Use
  Company Number: CN-BAXTER-2019BAX024582

PATIENT
  Age: 75 Year
  Sex: Female
  Weight: 49.5 kg

DRUGS (12)
  1. DOXORUBICIN HYDROCHLORIDE LIPOSOME [Suspect]
     Active Substance: DOXORUBICIN HYDROCHLORIDE
     Dosage: DOXORUBICIN HYDROCHLORIDE LIPOSOME INJECTION 40 MG + 5% GLUCOSE INJECTION 250ML
     Route: 041
     Dates: start: 20191109, end: 20191109
  2. 0.9% SODIUM CHLORIDE INJECTION [Suspect]
     Active Substance: SODIUM CHLORIDE
     Indication: MEDICATION DILUTION
     Dosage: CYCLOPHOSPHAMIDE FOR INJECTION + 0.9% SODIUM CHLORIDE INJECTION
     Route: 065
  3. 0.9% SODIUM CHLORIDE INJECTION [Suspect]
     Active Substance: SODIUM CHLORIDE
     Dosage: CYCLOPHOSPHAMIDE FOR INJECTION 0.6G + 0.9% SODIUM CHLORIDE INJECTION 100ML
     Route: 041
     Dates: start: 20191109, end: 20191109
  4. DOXORUBICIN HYDROCHLORIDE LIPOSOME [Suspect]
     Active Substance: DOXORUBICIN HYDROCHLORIDE
     Indication: DIFFUSE LARGE B-CELL LYMPHOMA
     Dosage: DOXORUBICIN HYDROCHLORIDE LIPOSOME INJECTION + 5% GLUCOSE INJECTION
     Route: 065
  5. ENDOXAN [Suspect]
     Active Substance: CYCLOPHOSPHAMIDE
     Indication: DIFFUSE LARGE B-CELL LYMPHOMA
     Dosage: CYCLOPHOSPHAMIDE FOR INJECTION + 0.9% SODIUM CHLORIDE INJECTION
     Route: 065
  6. DOXORUBICIN HYDROCHLORIDE LIPOSOME [Suspect]
     Active Substance: DOXORUBICIN HYDROCHLORIDE
     Dosage: DOXORUBICIN HYDROCHLORIDE LIPOSOME INJECTION + 5% GLUCOSE INJECTION, DOSE REINTRODUCED
     Route: 041
  7. 0.9% SODIUM CHLORIDE INJECTION [Suspect]
     Active Substance: SODIUM CHLORIDE
     Dosage: CYCLOPHOSPHAMIDE FOR INJECTION + 0.9% SODIUM CHLORIDE INJECTION, DOSE REINTRODUCED
     Route: 041
  8. 5% GLUCOSE  INJECTION [Suspect]
     Active Substance: DEXTROSE
     Dosage: DOXORUBICIN HYDROCHLORIDE LIPOSOME INJECTION + 5% GLUCOSE INJECTION, DOSE REINTRODUCED
     Route: 041
  9. ENDOXAN [Suspect]
     Active Substance: CYCLOPHOSPHAMIDE
     Dosage: CYCLOPHOSPHAMIDE FOR INJECTION 0.6G + 0.9% SODIUM CHLORIDE INJECTION 100ML
     Route: 041
     Dates: start: 20191109, end: 20191109
  10. ENDOXAN [Suspect]
     Active Substance: CYCLOPHOSPHAMIDE
     Dosage: CYCLOPHOSPHAMIDE FOR INJECTION + 0.9% SODIUM CHLORIDE INJECTION, DOSE REINTRODUCED
     Route: 041
  11. 5% GLUCOSE  INJECTION [Suspect]
     Active Substance: DEXTROSE
     Indication: MEDICATION DILUTION
     Dosage: DOXORUBICIN HYDROCHLORIDE LIPOSOME INJECTION + 5% GLUCOSE INJECTION
     Route: 065
  12. 5% GLUCOSE  INJECTION [Suspect]
     Active Substance: DEXTROSE
     Dosage: DOXORUBICIN HYDROCHLORIDE LIPOSOME INJECTION 40 MG + 5% GLUCOSE INJECTION 250ML
     Route: 041
     Dates: start: 20191109, end: 20191109

REACTIONS (2)
  - Bone marrow failure [Recovered/Resolved]
  - Bone marrow failure [Recovering/Resolving]

NARRATIVE: CASE EVENT DATE: 20191116
